FAERS Safety Report 10160539 (Version 1)
Quarter: 2014Q2

REPORT INFORMATION
  Report Type: Report from Study
  Country: CA (occurrence: CA)
  Receive Date: 20140508
  Receipt Date: 20140508
  Transmission Date: 20141212
  Serious: Yes (Hospitalization, Other)
  Sender: FDA-Public Use
  Company Number: CA-ABBVIE-14P-028-1232072-00

PATIENT
  Sex: Female

DRUGS (3)
  1. HUMIRA [Suspect]
     Indication: RHEUMATOID ARTHRITIS
     Route: 058
     Dates: start: 20130306
  2. PERCOCET [Concomitant]
     Indication: PAIN
     Route: 048
  3. TYLENOL W/CODEINE NO. 4 [Concomitant]
     Indication: PAIN
     Route: 048

REACTIONS (6)
  - Gallbladder disorder [Recovered/Resolved]
  - Furuncle [Recovered/Resolved]
  - Pneumonia [Recovered/Resolved]
  - Pain [Not Recovered/Not Resolved]
  - Panic attack [Not Recovered/Not Resolved]
  - Inflammation [Not Recovered/Not Resolved]
